FAERS Safety Report 9314263 (Version 1)
Quarter: 2013Q2

REPORT INFORMATION
  Report Type: Spontaneous
  Country: US (occurrence: None)
  Receive Date: 20130524
  Receipt Date: 20130524
  Transmission Date: 20140414
  Serious: Yes (Other)
  Sender: FDA-Public Use
  Company Number: None

PATIENT
  Age: 60 Year
  Sex: Female
  Weight: 103.42 kg

DRUGS (1)
  1. CARBOPLATIN [Suspect]
     Dosage: 501MG  Q3 WEEKS  IV?FIRST DOSE SINCE 2010
     Route: 042

REACTIONS (3)
  - Infusion related reaction [None]
  - Dyspnoea [None]
  - Oxygen saturation decreased [None]
